FAERS Safety Report 9057886 (Version 1)
Quarter: 2013Q1

REPORT INFORMATION
  Report Type: Spontaneous
  Country: US (occurrence: None)
  Receive Date: 20130204
  Receipt Date: 20130204
  Transmission Date: 20140127
  Serious: No
  Sender: FDA-Public Use
  Company Number: None

PATIENT
  Age: 30 Year
  Sex: Female
  Weight: 113.4 kg

DRUGS (1)
  1. NUVARING [Suspect]
     Indication: CONTRACEPTION
     Dosage: 1 RING ONCE EVERY 3 WEEKS VAG
     Dates: start: 20130122, end: 20150731

REACTIONS (6)
  - Nausea [None]
  - Eating disorder [None]
  - Dizziness [None]
  - Headache [None]
  - Activities of daily living impaired [None]
  - Impaired driving ability [None]
